FAERS Safety Report 16489409 (Version 1)
Quarter: 2019Q2

REPORT INFORMATION
  Report Type: Spontaneous
  Country: US (occurrence: US)
  Receive Date: 20190628
  Receipt Date: 20190628
  Transmission Date: 20190711
  Serious: No
  Sender: FDA-Public Use
  Company Number: US-LUPIN PHARMACEUTICALS INC.-2018-04461

PATIENT
  Sex: Male
  Weight: 83 kg

DRUGS (3)
  1. SIMVASTATIN TABLETS USP, 40 MG [Suspect]
     Active Substance: SIMVASTATIN
     Indication: BLOOD CHOLESTEROL ABNORMAL
     Dosage: 40 MG, QD
     Route: 048
     Dates: start: 201712
  2. SIMVASTATIN TABLETS USP, 20 MG [Suspect]
     Active Substance: SIMVASTATIN
     Indication: BLOOD CHOLESTEROL ABNORMAL
     Dosage: 20 MG, QD
     Route: 048
     Dates: end: 201712
  3. SIMVASTATIN TABLETS USP, 40 MG [Suspect]
     Active Substance: SIMVASTATIN
     Dosage: 20 MG, QD (HALF TABLET)
     Route: 048
     Dates: start: 20180612

REACTIONS (2)
  - Pain in extremity [Not Recovered/Not Resolved]
  - Wrong technique in product usage process [Unknown]
